FAERS Safety Report 13628293 (Version 4)
Quarter: 2017Q4

REPORT INFORMATION
  Report Type: Spontaneous
  Country: CN (occurrence: CN)
  Receive Date: 20170608
  Receipt Date: 20171026
  Transmission Date: 20180320
  Serious: Yes (Hospitalization, Other)
  Sender: FDA-Public Use
  Company Number: CN-PFIZER INC-2017248052

PATIENT
  Age: 58 Year
  Sex: Male

DRUGS (13)
  1. METHYLPREDNISOLONE SODIUM SUCCINATE. [Suspect]
     Active Substance: METHYLPREDNISOLONE SODIUM SUCCINATE
     Dosage: 40 MG, UNK (ON POD 6,TAPERED 40 MG EVERY DAY FROM POD 2 UNTIL POD 6)
     Route: 042
  2. METHYLPREDNISOLONE. [Suspect]
     Active Substance: METHYLPREDNISOLONE
     Indication: IMMUNOSUPPRESSANT DRUG THERAPY
     Dosage: 16 MG, UNK (ON POD 7)
     Route: 048
  3. METHYLPREDNISOLONE SODIUM SUCCINATE. [Suspect]
     Active Substance: METHYLPREDNISOLONE SODIUM SUCCINATE
     Dosage: 200 MG, UNK (ON POD 2,TAPERED 40 MG EVERY DAY FROM POD 2 UNTIL POD 6)
     Route: 042
  4. METHYLPREDNISOLONE SODIUM SUCCINATE. [Suspect]
     Active Substance: METHYLPREDNISOLONE SODIUM SUCCINATE
     Dosage: 120 MG, UNK (ON POD 4, TAPERED 40 MG EVERY DAY FROM POD 2 UNTIL POD 6)
     Route: 042
  5. BASILIXIMAB [Suspect]
     Active Substance: BASILIXIMAB
     Indication: IMMUNOSUPPRESSANT DRUG THERAPY
     Dosage: UNK (INTRAOPERATIVELY AND ON POD 4)
  6. MICAFUNGIN [Suspect]
     Active Substance: MICAFUNGIN
     Indication: ANTIBIOTIC THERAPY
     Dosage: 100 MG, 1X/DAY
     Route: 042
  7. METHYLPREDNISOLONE SODIUM SUCCINATE. [Suspect]
     Active Substance: METHYLPREDNISOLONE SODIUM SUCCINATE
     Dosage: 160 MG, UNK (ON POD 3,TAPERED 40 MG EVERY DAY FROM POD 2 UNTIL POD 6)
     Route: 042
  8. METHYLPREDNISOLONE SODIUM SUCCINATE. [Suspect]
     Active Substance: METHYLPREDNISOLONE SODIUM SUCCINATE
     Dosage: 80 MG, UNK (ON POD 5, TAPERED 40 MG EVERY DAY FROM POD 2 UNTIL POD 6)
     Route: 042
  9. TACROLIMUS. [Suspect]
     Active Substance: TACROLIMUS
     Indication: IMMUNOSUPPRESSANT DRUG THERAPY
     Dosage: 1.5 MG, 2X/DAY SINCE POD 3
  10. CEFEPIME [Suspect]
     Active Substance: CEFEPIME HYDROCHLORIDE
     Indication: ANTIBIOTIC THERAPY
     Dosage: 2 G, 2X/DAY ( EVERY 12 H)
     Route: 042
  11. METHYLPREDNISOLONE SODIUM SUCCINATE. [Suspect]
     Active Substance: METHYLPREDNISOLONE SODIUM SUCCINATE
     Dosage: 500 MG, UNK (GIVEN INITIALLY)
     Route: 042
  12. MYCOPHENOLATE MOFETIL. [Suspect]
     Active Substance: MYCOPHENOLATE MOFETIL
     Indication: IMMUNOSUPPRESSANT DRUG THERAPY
     Dosage: 750 MG, 2X/DAY SINCE POD 1
  13. METHYLPREDNISOLONE SODIUM SUCCINATE. [Suspect]
     Active Substance: METHYLPREDNISOLONE SODIUM SUCCINATE
     Dosage: 240 MG, UNK (ON POD 1)
     Route: 042

REACTIONS (1)
  - Appendicitis [Recovered/Resolved]
